FAERS Safety Report 4710607-X (Version None)
Quarter: 2005Q3

REPORT INFORMATION
  Report Type: 
  Country: None (occurrence: None)
  Receive Date: 20050707
  Receipt Date: 20050624
  Transmission Date: 20060218
  Serious: Yes (Hospitalization)
  Sender: FDA-Public Use
  Company Number: CIP05001123

PATIENT
  Age: 69 Year
  Sex: Female

DRUGS (7)
  1. DIDRONEL [Suspect]
     Indication: OSTEOPOROSIS
     Dosage: 200 MG, CYCLIC DAILY, ORAL
     Route: 048
     Dates: start: 20050408, end: 20050421
  2. DIDRONEL [Suspect]
     Indication: OSTEOPOROSIS
     Dosage: 200 MG, CYCLIC DAILY, ORAL
     Route: 048
     Dates: start: 20030401
  3. PREMARIN [Concomitant]
  4. PROVERA [Concomitant]
  5. NU-LOTAN (LOSARTAN POTASSIUM) [Concomitant]
  6. AMLODIPINE BESYLATE [Concomitant]
  7. SERUMLIPIDREDUCING AGENTS [Concomitant]

REACTIONS (11)
  - ABDOMINAL PAIN UPPER [None]
  - ASPARTATE AMINOTRANSFERASE INCREASED [None]
  - BACK PAIN [None]
  - BLOOD ALKALINE PHOSPHATASE INCREASED [None]
  - CHEST PAIN [None]
  - EFFUSION [None]
  - GAMMA-GLUTAMYLTRANSFERASE INCREASED [None]
  - GASTRIC ULCER HAEMORRHAGE [None]
  - OESOPHAGEAL ULCER [None]
  - SENSATION OF FOREIGN BODY [None]
  - WHITE BLOOD CELL COUNT INCREASED [None]
